FAERS Safety Report 9309606 (Version 1)
Quarter: 2013Q2

REPORT INFORMATION
  Report Type: Spontaneous
  Country: US (occurrence: US)
  Receive Date: 20130525
  Receipt Date: 20130525
  Transmission Date: 20140414
  Serious: No
  Sender: FDA-Public Use
  Company Number: US-BRISTOL-MYERS SQUIBB COMPANY-17459033

PATIENT
  Age: 53 Year
  Sex: Female

DRUGS (1)
  1. BYDUREON [Suspect]
     Route: 058

REACTIONS (3)
  - Injection site urticaria [Unknown]
  - Injection site erythema [Unknown]
  - Injection site warmth [Unknown]
